FAERS Safety Report 20195625 (Version 1)
Quarter: 2021Q4

REPORT INFORMATION
  Report Type: Other
  Country: US (occurrence: US)
  Receive Date: 20211216
  Receipt Date: 20211216
  Transmission Date: 20220303
  Serious: Yes (Death, Hospitalization, Other)
  Sender: FDA-Public Use
  Company Number: US-ACORDA-ACO_170960_2021

PATIENT
  Sex: Male

DRUGS (2)
  1. INBRIJA [Suspect]
     Active Substance: LEVODOPA
     Indication: Parkinson^s disease
     Dosage: 2 CAPSULES, PRN, DO NOT EXCEED 5 DOSES PER DAY
     Dates: start: 20201111, end: 202112
  2. INBRIJA [Suspect]
     Active Substance: LEVODOPA
     Indication: On and off phenomenon

REACTIONS (2)
  - Death [Fatal]
  - Adverse event [Not Recovered/Not Resolved]
